FAERS Safety Report 4279158-3 (Version None)
Quarter: 2004Q1

REPORT INFORMATION
  Report Type: 
  Country: None (occurrence: None)
  Receive Date: 20040123
  Receipt Date: 20040123
  Transmission Date: 20041129
  Serious: No
  Sender: FDA-Public Use
  Company Number: None

PATIENT
  Age: 51 Year
  Sex: Female

DRUGS (1)
  1. AVONEX [Suspect]
     Dosage: 30 MCG Q WK
     Dates: start: 20031006

REACTIONS (9)
  - CHILLS [None]
  - FATIGUE [None]
  - HEADACHE [None]
  - MALAISE [None]
  - MIGRAINE [None]
  - MOBILITY DECREASED [None]
  - NAUSEA [None]
  - PYREXIA [None]
  - TREMOR [None]
